FAERS Safety Report 4999289-X (Version None)
Quarter: 2006Q2

REPORT INFORMATION
  Report Type: 
  Country: None (occurrence: None)
  Receive Date: 20060511
  Receipt Date: 20060501
  Transmission Date: 20061013
  Serious: Yes (Other)
  Sender: FDA-Public Use
  Company Number: US-JNJFOC-20060500819

PATIENT
  Age: 47 Year
  Sex: Female
  Weight: 65.77 kg

DRUGS (5)
  1. DITROPAN XL [Suspect]
     Route: 048
  2. OXYTROL [Suspect]
     Route: 062
  3. IMIPRAMINE [Suspect]
     Route: 048
  4. TRAZODONE HCL [Suspect]
     Route: 048
  5. PROTONIX [Concomitant]

REACTIONS (19)
  - ANXIETY [None]
  - CHEST PAIN [None]
  - CONSTIPATION [None]
  - DIARRHOEA [None]
  - DRY MOUTH [None]
  - DYSPNOEA [None]
  - EYE PAIN [None]
  - EYE SWELLING [None]
  - FEELING HOT [None]
  - GLAUCOMA [None]
  - HEADACHE [None]
  - HYPERTENSION [None]
  - JOINT SWELLING [None]
  - SINUS DISORDER [None]
  - SOMNOLENCE [None]
  - SWELLING FACE [None]
  - VISION BLURRED [None]
  - VISUAL ACUITY REDUCED [None]
  - VITREOUS FLOATERS [None]
